FAERS Safety Report 23099360 (Version 1)
Quarter: 2023Q4

REPORT INFORMATION
  Report Type: Spontaneous
  Country: US (occurrence: US)
  Receive Date: 20231024
  Receipt Date: 20231024
  Transmission Date: 20240109
  Serious: No
  Sender: FDA-Public Use
  Company Number: US-UROGEN PHARMA LTD.-2023-UGN-000068

PATIENT

DRUGS (9)
  1. JELMYTO [Suspect]
     Active Substance: MITOMYCIN
     Indication: Transitional cell cancer of the renal pelvis and ureter
     Dosage: 10 MILLILITER, (INSTILLATION)
     Dates: start: 20230706, end: 20230706
  2. JELMYTO [Suspect]
     Active Substance: MITOMYCIN
     Dosage: 10 MILLILITER, (INSTILLATION)
     Dates: start: 20230713, end: 20230713
  3. JELMYTO [Suspect]
     Active Substance: MITOMYCIN
     Dosage: 10 MILLILITER, (INSTILLATION)
     Dates: start: 20230720, end: 20230720
  4. JELMYTO [Suspect]
     Active Substance: MITOMYCIN
     Dosage: 10 MILLILITER, (INSTILLATION)
     Dates: start: 20230727, end: 20230727
  5. JELMYTO [Suspect]
     Active Substance: MITOMYCIN
     Dosage: 10 MILLILITER, (INSTILLATION)
     Dates: start: 20230810, end: 20230810
  6. JELMYTO [Suspect]
     Active Substance: MITOMYCIN
     Dosage: 10 MILLILITER, (INSTILLATION)
     Dates: start: 20230817, end: 20230817
  7. SULFASALAZINE [Concomitant]
     Active Substance: SULFASALAZINE
     Indication: Colitis ulcerative
     Route: 065
  8. VITAMIN D [Concomitant]
     Active Substance: VITAMIN D NOS
     Indication: Product used for unknown indication
     Route: 065
  9. VITAMINS [Concomitant]
     Active Substance: VITAMINS
     Indication: Product used for unknown indication
     Route: 065

REACTIONS (3)
  - Rash papular [Recovered/Resolved]
  - Rash [Recovered/Resolved]
  - Rash [Recovered/Resolved]

NARRATIVE: CASE EVENT DATE: 20230101
